FAERS Safety Report 4502489-6 (Version None)
Quarter: 2004Q4

REPORT INFORMATION
  Report Type: 
  Country: None (occurrence: None)
  Receive Date: 20041112
  Receipt Date: 20041018
  Transmission Date: 20050328
  Serious: Yes (Death, Life-Threatening, Hospitalization, Disabling)
  Sender: FDA-Public Use
  Company Number: D01200404230

PATIENT
  Age: 72 Year
  Sex: 0

DRUGS (6)
  1. CLOPIDOGREL - TABLET - 75MG [Suspect]
     Indication: PROPHYLAXIS
     Dosage: 75 MG QD ORAL
     Route: 048
     Dates: start: 20031021, end: 20041001
  2. ACETYLSALICYLIC ACID SRT [Concomitant]
  3. MORPHINE [Concomitant]
  4. PENTOTHAL [Concomitant]
  5. VECHRONIUM [Concomitant]
  6. BUXEMETHASONE [Concomitant]

REACTIONS (2)
  - MIDDLE INSOMNIA [None]
  - SUBARACHNOID HAEMORRHAGE [None]
